FAERS Safety Report 14661743 (Version 3)
Quarter: 2022Q4

REPORT INFORMATION
  Report Type: Spontaneous
  Country: CA (occurrence: CA)
  Receive Date: 20180320
  Receipt Date: 20221104
  Transmission Date: 20230113
  Serious: Yes (Hospitalization, Other)
  Sender: FDA-Public Use
  Company Number: CA-ALLERGAN-1814960US

PATIENT
  Sex: Male

DRUGS (3)
  1. MESALAMINE [Suspect]
     Active Substance: MESALAMINE
     Indication: Colitis ulcerative
     Dosage: 4 G, QD
  2. INFLIXIMAB [Suspect]
     Active Substance: INFLIXIMAB
     Indication: Colitis ulcerative
     Dosage: 5 MG/KG INDUCTION DOSE, MAINTENANCE INTERVAL CHANGED TO EVERY 4 WEEKS
  3. INFLIXIMAB [Suspect]
     Active Substance: INFLIXIMAB
     Dosage: 5 MG/KG, INDUCTION AND MAINTENANCE EVERY 8 WEEKS

REACTIONS (3)
  - Toxicity to various agents [Recovering/Resolving]
  - Abdominal symptom [Recovering/Resolving]
  - Interstitial lung disease [Recovering/Resolving]
